FAERS Safety Report 14835147 (Version 3)
Quarter: 2018Q2

REPORT INFORMATION
  Report Type: Report from Study
  Country: None (occurrence: US)
  Receive Date: 20180501
  Receipt Date: 20180518
  Transmission Date: 20180711
  Serious: Yes (Other)
  Sender: FDA-Public Use
  Company Number: US-ABBVIE-18P-163-2337222-00

PATIENT
  Sex: Female

DRUGS (1)
  1. MAVYRET [Suspect]
     Active Substance: GLECAPREVIR\PIBRENTASVIR
     Indication: CHRONIC HEPATITIS C
     Dosage: AS DIRECTED
     Route: 065
     Dates: start: 20180404

REACTIONS (4)
  - Weight decreased [Recovering/Resolving]
  - Surgery [Unknown]
  - Nausea [Unknown]
  - Pruritus generalised [Not Recovered/Not Resolved]
